FAERS Safety Report 7318017-6 (Version None)
Quarter: 2011Q1

REPORT INFORMATION
  Report Type: 
  Country: None (occurrence: None)
  Receive Date: 20110227
  Receipt Date: 20110214
  Transmission Date: 20110831
  Serious: Yes (Other)
  Sender: FDA-Public Use
  Company Number: US-BRISTOL-MYERS SQUIBB COMPANY-15570807

PATIENT

DRUGS (3)
  1. EFAVIRENZ [Suspect]
     Route: 064
  2. LAMIVUDINE [Suspect]
     Route: 064
  3. ZIDOVUDINE [Suspect]
     Route: 064

REACTIONS (1)
  - HIV INFECTION [None]
